FAERS Safety Report 20494073 (Version 4)
Quarter: 2022Q2

REPORT INFORMATION
  Report Type: Spontaneous
  Country: JP (occurrence: JP)
  Receive Date: 20220221
  Receipt Date: 20220518
  Transmission Date: 20220720
  Serious: Yes (Hospitalization)
  Sender: FDA-Public Use
  Company Number: JP-NBI-J202122435BIPI

PATIENT
  Age: 80 Year
  Sex: Female

DRUGS (6)
  1. OFEV [Suspect]
     Active Substance: NINTEDANIB
     Indication: Idiopathic pulmonary fibrosis
     Route: 048
     Dates: start: 20211001
  2. CORTICOSTEROID NOS [Suspect]
     Active Substance: CORTICOSTEROID NOS
     Indication: Idiopathic pulmonary fibrosis
     Route: 048
  3. BETAHISTINE MESILATE [Concomitant]
     Active Substance: BETAHISTINE MESILATE
     Indication: Dizziness
     Route: 048
     Dates: start: 20211215
  4. ADETPHOS [Concomitant]
     Active Substance: ADENOSINE TRIPHOSPHATE
     Indication: Dizziness
     Route: 048
     Dates: start: 20211215
  5. METHYLCOBALAMIN [Concomitant]
     Active Substance: METHYLCOBALAMIN
     Indication: Dizziness
     Route: 048
     Dates: start: 20211215
  6. ISOSORBIDE [Concomitant]
     Active Substance: ISOSORBIDE
     Indication: Dizziness
     Route: 048
     Dates: start: 20211215

REACTIONS (14)
  - Dyspnoea [Recovering/Resolving]
  - Nausea [Recovered/Resolved]
  - Abdominal discomfort [Not Recovered/Not Resolved]
  - Diarrhoea [Not Recovered/Not Resolved]
  - Pruritus [Recovered/Resolved]
  - Tremor [Not Recovered/Not Resolved]
  - Erythema [Not Recovered/Not Resolved]
  - Muscular weakness [Not Recovered/Not Resolved]
  - Stomatitis [Not Recovered/Not Resolved]
  - Fatigue [Not Recovered/Not Resolved]
  - Decreased appetite [Recovered/Resolved]
  - Weight decreased [Recovering/Resolving]
  - Oedema peripheral [Not Recovered/Not Resolved]
  - Cushingoid [Not Recovered/Not Resolved]

NARRATIVE: CASE EVENT DATE: 20211116
